FAERS Safety Report 11463766 (Version 1)
Quarter: 2015Q3

REPORT INFORMATION
  Report Type: Spontaneous
  Country: US (occurrence: US)
  Receive Date: 20150831
  Receipt Date: 20150831
  Transmission Date: 20151125
  Serious: No
  Sender: FDA-Public Use
  Company Number: US-ELI_LILLY_AND_COMPANY-US201104007925

PATIENT
  Age: 63 Year
  Sex: Female

DRUGS (2)
  1. CYMBALTA [Suspect]
     Active Substance: DULOXETINE HYDROCHLORIDE
     Dosage: UNK, UNKNOWN
     Dates: end: 20110408
  2. CYMBALTA [Suspect]
     Active Substance: DULOXETINE HYDROCHLORIDE
     Indication: BACK PAIN
     Dosage: 30 MG, QD
     Dates: start: 201010, end: 20110325

REACTIONS (13)
  - Headache [Not Recovered/Not Resolved]
  - Dizziness [Not Recovered/Not Resolved]
  - Tinnitus [Unknown]
  - Drug effect incomplete [Recovered/Resolved]
  - Night sweats [Unknown]
  - Yellow skin [Unknown]
  - Malaise [Unknown]
  - Feeling hot [Unknown]
  - Muscle twitching [Unknown]
  - Nightmare [Unknown]
  - Cold sweat [Unknown]
  - Nausea [Not Recovered/Not Resolved]
  - Back pain [Unknown]

NARRATIVE: CASE EVENT DATE: 201011
